FAERS Safety Report 5606447-X (Version None)
Quarter: 2008Q1

REPORT INFORMATION
  Report Type: 
  Country: None (occurrence: None)
  Receive Date: 20080129
  Receipt Date: 20071130
  Transmission Date: 20080703
  Serious: Yes (Other)
  Sender: FDA-Public Use
  Company Number: A0696810A

PATIENT
  Age: 9 Year
  Sex: Male

DRUGS (3)
  1. WELLBUTRIN [Suspect]
     Indication: DEPRESSION
     Route: 048
     Dates: start: 20071025
  2. ALLEGRA [Concomitant]
  3. ALLERGY MEDICATION [Concomitant]

REACTIONS (1)
  - AGGRESSION [None]
